FAERS Safety Report 7050612-4 (Version None)
Quarter: 2010Q4

REPORT INFORMATION
  Report Type: 
  Country: None (occurrence: None)
  Receive Date: 20101018
  Receipt Date: 20090312
  Transmission Date: 20110411
  Serious: Yes (Death, Other)
  Sender: FDA-Public Use
  Company Number: BR-GENENTECH-308175

PATIENT
  Age: 36 Year
  Sex: Male

DRUGS (1)
  1. MABTHERA [Suspect]
     Indication: DISEASE PROGRESSION
     Dosage: UNK
     Route: 065

REACTIONS (2)
  - DEATH [None]
  - UNEVALUABLE EVENT [None]
